FAERS Safety Report 21878637 (Version 1)
Quarter: 2023Q1

REPORT INFORMATION
  Report Type: Spontaneous
  Country: US (occurrence: US)
  Receive Date: 20230118
  Receipt Date: 20230118
  Transmission Date: 20230417
  Serious: No
  Sender: FDA-Public Use
  Company Number: US-INCYTE CORPORATION-2023IN000257

PATIENT

DRUGS (2)
  1. JAKAFI [Suspect]
     Active Substance: RUXOLITINIB
     Indication: Haemophagocytic lymphohistiocytosis
     Dosage: 10 MILLIGRAM, QD
     Route: 048
  2. JAKAFI [Suspect]
     Active Substance: RUXOLITINIB
     Indication: Juvenile idiopathic arthritis

REACTIONS (3)
  - Ill-defined disorder [Unknown]
  - Product availability issue [Unknown]
  - Off label use [Unknown]
